FAERS Safety Report 4675749-6 (Version None)
Quarter: 2005Q2

REPORT INFORMATION
  Report Type: 
  Country: None (occurrence: None)
  Receive Date: 20050527
  Receipt Date: 20050322
  Transmission Date: 20051028
  Serious: No
  Sender: FDA-Public Use
  Company Number: US-BRISTOL-MYERS SQUIBB COMPANY-12907176

PATIENT
  Age: 65 Year
  Sex: Male
  Weight: 59 kg

DRUGS (4)
  1. CETUXIMAB [Suspect]
     Indication: COLON CANCER STAGE IV
     Dosage: DOSE DELAYED.
     Route: 042
     Dates: start: 20050120, end: 20050120
  2. OXALIPLATIN [Suspect]
     Indication: COLON CANCER STAGE IV
     Route: 042
     Dates: start: 20050120, end: 20050120
  3. FLUOROURACIL [Concomitant]
     Indication: COLON CANCER STAGE IV
     Route: 042
     Dates: start: 20050120, end: 20050120
  4. LEUCOVORIN CALCIUM [Concomitant]
     Indication: COLON CANCER STAGE IV
     Route: 042

REACTIONS (6)
  - COUGH [None]
  - ERYTHEMA [None]
  - FEELING HOT [None]
  - FLUSHING [None]
  - NEUTROPHIL COUNT DECREASED [None]
  - PRURITUS [None]
